FAERS Safety Report 9568923 (Version 1)
Quarter: 2013Q3

REPORT INFORMATION
  Report Type: Spontaneous
  Country: US (occurrence: US)
  Receive Date: 20130930
  Receipt Date: 20130930
  Transmission Date: 20140515
  Serious: No
  Sender: FDA-Public Use
  Company Number: US-AMGEN-USASP2013060325

PATIENT
  Age: 61 Year
  Sex: Male
  Weight: 72.56 kg

DRUGS (9)
  1. ENBREL [Suspect]
     Indication: PRODUCT USED FOR UNKNOWN INDICATION
     Dosage: 25 MG, 2 TIMES/WK
     Route: 058
  2. TRAMADOL HCL [Concomitant]
     Dosage: 50 MG, UNK
  3. METFORMIN [Concomitant]
     Dosage: 500 MG, UNK
  4. FINASTERIDE [Concomitant]
     Dosage: 5 MG, UNK
  5. SIMVASTATIN [Concomitant]
     Dosage: 5 MG, UNK
  6. HYDROXYCHLOROQUINE [Concomitant]
     Dosage: 200 MG, UNK
  7. PROMETHAZINE [Concomitant]
     Dosage: 25 MG, UNK
  8. TESTOSTERONE [Concomitant]
     Dosage: 100 MG/ML, UNK
  9. VITAMIN C                          /00008001/ [Concomitant]
     Dosage: 500 MG, UNK

REACTIONS (1)
  - Drug ineffective [Unknown]
